FAERS Safety Report 8896448 (Version 1)
Quarter: 2012Q4

REPORT INFORMATION
  Report Type: Spontaneous
  Country: ES (occurrence: None)
  Receive Date: 20121105
  Receipt Date: 20121105
  Transmission Date: 20130627
  Serious: Yes (Hospitalization)
  Sender: FDA-Public Use
  Company Number: DSA_60459_2012

PATIENT
  Age: 7 Month
  Sex: Male

DRUGS (5)
  1. FLAGYL [Suspect]
     Dosage: Greater than 60mg/8H IV, 45mg/8H 3 Days, afterwards 50mg/8H
     Route: 042
     Dates: start: 20120326, end: 20120330
  2. NOLOTIL /SPA/ [Concomitant]
  3. RANITIDINE [Concomitant]
  4. PARACETAMOL [Concomitant]
  5. GENTAMICIN [Concomitant]

REACTIONS (1)
  - Febrile neutropenia [None]
